FAERS Safety Report 4668730-4 (Version None)
Quarter: 2005Q2

REPORT INFORMATION
  Report Type: 
  Country: None (occurrence: None)
  Receive Date: 20050519
  Receipt Date: 20050512
  Transmission Date: 20051028
  Serious: Yes (Other)
  Sender: FDA-Public Use
  Company Number: 2005074044

PATIENT
  Age: 62 Year
  Sex: Female
  Weight: 81.6475 kg

DRUGS (3)
  1. COLESTID [Suspect]
     Indication: BLOOD CHOLESTEROL
     Dosage: 2 GRAM (1 GRAM, 1 IN 2 D), ORAL
     Route: 048
     Dates: start: 20050201
  2. ATENOLOL [Concomitant]
  3. DIURETICS (DIURETICS) [Concomitant]

REACTIONS (3)
  - PHARMACEUTICAL PRODUCT COMPLAINT [None]
  - PHARYNX DISCOMFORT [None]
  - UTERINE CANCER [None]
